FAERS Safety Report 13865471 (Version 1)
Quarter: 2017Q3

REPORT INFORMATION
  Report Type: Report from Study
  Country: US (occurrence: US)
  Receive Date: 20170814
  Receipt Date: 20170814
  Transmission Date: 20171127
  Serious: Yes (Other)
  Sender: FDA-Public Use
  Company Number: US-AEGERION PHARMACEUTICAL, INC-AEGR002991

PATIENT
  Age: 50 Year
  Sex: Female
  Weight: 86.17 kg

DRUGS (4)
  1. JUXTAPID [Suspect]
     Active Substance: LOMITAPIDE MESYLATE
     Dosage: 5 MG, QD
     Route: 048
     Dates: start: 2017, end: 20170204
  2. JUXTAPID [Suspect]
     Active Substance: LOMITAPIDE MESYLATE
     Dosage: 5 MG, QD
     Route: 048
     Dates: start: 20170206, end: 201702
  3. JUXTAPID [Suspect]
     Active Substance: LOMITAPIDE MESYLATE
     Dosage: 5 MG, QD
     Route: 048
     Dates: start: 201703
  4. JUXTAPID [Suspect]
     Active Substance: LOMITAPIDE MESYLATE
     Indication: TYPE IIA HYPERLIPIDAEMIA
     Dosage: 5 MG, QD
     Route: 048
     Dates: start: 20130524, end: 20170125

REACTIONS (7)
  - Flatulence [Unknown]
  - Toothache [Recovered/Resolved]
  - Nausea [Recovered/Resolved]
  - Therapy cessation [Recovered/Resolved]
  - Liver function test increased [Unknown]
  - Palpitations [Unknown]
  - Eructation [Unknown]

NARRATIVE: CASE EVENT DATE: 201701
